FAERS Safety Report 19983572 (Version 1)
Quarter: 2021Q4

REPORT INFORMATION
  Report Type: Report from Study
  Country: CA (occurrence: CA)
  Receive Date: 20211022
  Receipt Date: 20211022
  Transmission Date: 20220304
  Serious: Yes (Hospitalization)
  Sender: FDA-Public Use
  Company Number: CA-TAKEDA-2021TUS065087

PATIENT
  Age: 25 Year
  Sex: Male

DRUGS (2)
  1. VEDOLIZUMAB [Suspect]
     Active Substance: VEDOLIZUMAB
     Indication: Colitis ulcerative
     Dosage: 300 MILLIGRAM
     Route: 042
     Dates: start: 20210517
  2. ASACOL [Concomitant]
     Active Substance: MESALAMINE
     Dosage: UNK
     Dates: start: 20071007

REACTIONS (2)
  - Wound [Unknown]
  - Folliculitis [Unknown]
